FAERS Safety Report 4609167-3 (Version None)
Quarter: 2005Q1

REPORT INFORMATION
  Report Type: 
  Country: None (occurrence: None)
  Receive Date: 20050311
  Receipt Date: 20050302
  Transmission Date: 20050727
  Serious: Yes (Other)
  Sender: FDA-Public Use
  Company Number: CAR 2005-004

PATIENT
  Age: 34 Month
  Sex: Male

DRUGS (6)
  1. CARAFATE [Suspect]
     Indication: GASTROOESOPHAGEAL REFLUX DISEASE
     Dosage: 2 ML QID PO; 4 DOSES
     Route: 048
     Dates: start: 20050223, end: 20050224
  2. CARAFATE [Suspect]
     Indication: ULCER
     Dosage: 2 ML QID PO; 4 DOSES
     Route: 048
     Dates: start: 20050223, end: 20050224
  3. PREVACID [Concomitant]
  4. ZANTAC [Concomitant]
  5. REGLAN [Concomitant]
  6. SEVERAL OTHERS [Concomitant]

REACTIONS (1)
  - ANAPHYLACTIC REACTION [None]
